FAERS Safety Report 9553761 (Version 1)
Quarter: 2013Q3

REPORT INFORMATION
  Report Type: Spontaneous
  Country: GR (occurrence: GR)
  Receive Date: 20130925
  Receipt Date: 20130925
  Transmission Date: 20140515
  Serious: Yes (Other)
  Sender: FDA-Public Use
  Company Number: GR-TEVA-432872ISR

PATIENT
  Age: 7 Year
  Sex: Male

DRUGS (4)
  1. METHOTREXATE [Suspect]
  2. DOXORUBICIN [Suspect]
  3. VINCRISTINE [Suspect]
  4. ETOPOSIDE [Suspect]

REACTIONS (1)
  - Tumour lysis syndrome [Recovered/Resolved]
